FAERS Safety Report 16807120 (Version 1)
Quarter: 2019Q3

REPORT INFORMATION
  Report Type: Report from Study
  Country: BR (occurrence: BR)
  Receive Date: 20190913
  Receipt Date: 20190913
  Transmission Date: 20191005
  Serious: Yes (Death, Hospitalization, Other)
  Sender: FDA-Public Use
  Company Number: BR-TAKEDA-2019TUS052049

PATIENT
  Age: 72 Year
  Sex: Male

DRUGS (2)
  1. MESACOL MMX [Suspect]
     Active Substance: MESALAMINE
     Indication: CROHN^S DISEASE
     Dosage: 1200 MILLIGRAM, QD
     Route: 048
  2. VEDOLIZUMAB [Suspect]
     Active Substance: VEDOLIZUMAB
     Indication: CROHN^S DISEASE
     Dosage: 300 MILLIGRAM
     Route: 042
     Dates: start: 20181107

REACTIONS (10)
  - Septic shock [Fatal]
  - Intestinal obstruction [Unknown]
  - Off label use [Unknown]
  - Post procedural discharge [Unknown]
  - Intestinal perforation [Unknown]
  - Respiratory failure [Fatal]
  - Crohn^s disease [Unknown]
  - Abdominal distension [Unknown]
  - Pneumonia [Fatal]
  - Decreased appetite [Unknown]

NARRATIVE: CASE EVENT DATE: 201905
